FAERS Safety Report 9215712 (Version 1)
Quarter: 2013Q2

REPORT INFORMATION
  Report Type: Spontaneous
  Country: ES (occurrence: ES)
  Receive Date: 20130408
  Receipt Date: 20130408
  Transmission Date: 20140414
  Serious: Yes (Other)
  Sender: FDA-Public Use
  Company Number: ES-009507513-1304ESP000445

PATIENT
  Age: 66 Year
  Sex: Female

DRUGS (5)
  1. INVANZ [Suspect]
     Indication: PNEUMONIA
     Dosage: 1GR
     Route: 042
     Dates: start: 20120915, end: 20120919
  2. CLARITHROMYCIN [Suspect]
     Indication: PNEUMONIA
     Dosage: 500MG/12H
     Route: 048
     Dates: start: 20120915, end: 20120919
  3. CLEXANE (ENOXAPARIN SODIUM) [Concomitant]
     Indication: THROMBOSIS PROPHYLAXIS
     Dosage: 40MG
     Route: 058
     Dates: start: 20120915
  4. AMBROXOL [Concomitant]
     Indication: PNEUMONIA
     Dosage: 15 MG MORNING AFTERNOON EVENING
     Route: 055
     Dates: start: 20120915
  5. BUDESONIDE [Concomitant]
     Dosage: 0.5MG MORNING AFTERNOON EVENING
     Route: 055
     Dates: start: 20120915

REACTIONS (1)
  - Hepatitis [Recovered/Resolved]
